FAERS Safety Report 8559097-X (Version None)
Quarter: 2012Q3

REPORT INFORMATION
  Report Type: 
  Country: None (occurrence: None)
  Receive Date: 20120802
  Receipt Date: 20120723
  Transmission Date: 20120928
  Serious: No
  Sender: FDA-Public Use
  Company Number: US-BIOGENIDEC-2012BI018960

PATIENT
  Sex: Female

DRUGS (2)
  1. AVONEX [Suspect]
     Indication: MULTIPLE SCLEROSIS
     Route: 030
     Dates: start: 20000913
  2. AVONEX [Suspect]
     Route: 030
     Dates: start: 20120702

REACTIONS (8)
  - GAIT DISTURBANCE [None]
  - HYPOAESTHESIA [None]
  - AMNESIA [None]
  - MUSCULAR WEAKNESS [None]
  - DISEASE PROGRESSION [None]
  - EMOTIONAL DISTRESS [None]
  - ARTHROPATHY [None]
  - EYE DISORDER [None]
